FAERS Safety Report 6207558-0 (Version None)
Quarter: 2009Q2

REPORT INFORMATION
  Report Type: 
  Country: None (occurrence: None)
  Receive Date: 20090528
  Receipt Date: 20090519
  Transmission Date: 20091009
  Serious: Yes (Other)
  Sender: FDA-Public Use
  Company Number: US-JNJCH-2009014176

PATIENT
  Age: 49 Year
  Sex: Female

DRUGS (2)
  1. COOL MINT LISTERINE [Suspect]
     Indication: DENTAL DISORDER PROPHYLAXIS
     Dosage: TEXT:1/4 CAPFUL ONCE A DAY
     Route: 050
     Dates: start: 20090514, end: 20090514
  2. LISINOPRIL [Concomitant]
     Indication: BLOOD PRESSURE
     Dosage: TEXT:10MG UNSPECIFIED
     Route: 048

REACTIONS (8)
  - ABDOMINAL PAIN UPPER [None]
  - BLOOD PRESSURE INCREASED [None]
  - IMPAIRED WORK ABILITY [None]
  - JAW DISORDER [None]
  - LACRIMATION INCREASED [None]
  - MIGRAINE [None]
  - PRODUCT QUALITY ISSUE [None]
  - RETCHING [None]
